FAERS Safety Report 4503135-8 (Version None)
Quarter: 2004Q4

REPORT INFORMATION
  Report Type: 
  Country: None (occurrence: None)
  Receive Date: 20041117
  Receipt Date: 20040304
  Transmission Date: 20050328
  Serious: No
  Sender: FDA-Public Use
  Company Number: US-BRISTOL-MYERS SQUIBB COMPANY-12524211

PATIENT
  Age: 72 Year
  Sex: Female
  Weight: 34 kg

DRUGS (11)
  1. CARBOPLATIN [Suspect]
     Indication: CARCINOMA
     Dosage: INITIAL DOSE: 11-FEB-2004
     Route: 042
     Dates: start: 20040301, end: 20040301
  2. ETOPOSIDE [Suspect]
     Indication: CARCINOMA
     Dosage: DAYS 1,2,3
     Route: 042
  3. PREMARIN [Concomitant]
  4. ASPIRIN [Concomitant]
  5. MULTI-VITAMIN [Concomitant]
  6. VITAMIN E [Concomitant]
  7. FISH OIL [Concomitant]
     Dosage: CAPSULES
     Route: 048
  8. FOLIC ACID [Concomitant]
  9. COMPAZINE [Concomitant]
     Indication: VOMITING
     Dosage: EVERY 6 HOURS
     Route: 048
  10. LORAZEPAM [Concomitant]
     Indication: VOMITING
     Dosage: EVERY 6 HOURS
     Route: 048
  11. NEXIUM [Concomitant]
     Route: 048

REACTIONS (1)
  - CYANOSIS [None]
